FAERS Safety Report 4422936-8 (Version None)
Quarter: 2004Q3

REPORT INFORMATION
  Report Type: 
  Country: None (occurrence: None)
  Receive Date: 20040811
  Receipt Date: 20040802
  Transmission Date: 20050211
  Serious: Yes (Hospitalization)
  Sender: FDA-Public Use
  Company Number: US-JNJFOC-20040604311

PATIENT
  Age: 49 Year
  Sex: Male

DRUGS (1)
  1. DURAGESIC [Suspect]
     Route: 062
     Dates: start: 20021001

REACTIONS (8)
  - APPLICATION SITE REACTION [None]
  - BACTERIAL INFECTION [None]
  - DIZZINESS [None]
  - DRUG WITHDRAWAL SYNDROME [None]
  - HEADACHE [None]
  - HEPATIC ENZYME INCREASED [None]
  - HEPATITIS C ANTIBODY POSITIVE [None]
  - NAUSEA [None]
